FAERS Safety Report 9292056 (Version 1)
Quarter: 2013Q2

REPORT INFORMATION
  Report Type: Spontaneous
  Country: US (occurrence: US)
  Receive Date: 20130516
  Receipt Date: 20130516
  Transmission Date: 20140414
  Serious: No
  Sender: FDA-Public Use
  Company Number: US-BIOGENIDEC-2013BI041563

PATIENT
  Age: 66 Year
  Sex: Female

DRUGS (1)
  1. AVONEX [Suspect]
     Indication: MULTIPLE SCLEROSIS
     Route: 030
     Dates: start: 19970328

REACTIONS (4)
  - White blood cell count increased [Recovered/Resolved]
  - Surgery [Recovered/Resolved]
  - Liver function test abnormal [Recovered/Resolved]
  - Anaemia [Not Recovered/Not Resolved]
